FAERS Safety Report 23304671 (Version 1)
Quarter: 2023Q4

REPORT INFORMATION
  Report Type: Report from Study
  Country: IT (occurrence: IT)
  Receive Date: 20231218
  Receipt Date: 20231218
  Transmission Date: 20240110
  Serious: Yes (Other)
  Sender: FDA-Public Use
  Company Number: None

PATIENT
  Age: 65 Year
  Sex: Female

DRUGS (7)
  1. CAPECITABINE [Suspect]
     Active Substance: CAPECITABINE
     Indication: Adenocarcinoma of colon
     Route: 048
     Dates: start: 20230906, end: 20230919
  2. FLUOROURACIL [Concomitant]
     Active Substance: FLUOROURACIL
     Indication: Adenocarcinoma of colon
     Dosage: ROUTE OF ADMINISTRATION: INTRAVENOUS - BOLUS
     Dates: start: 20230905
  3. Folina [Concomitant]
  4. OXALIPLATIN [Concomitant]
     Active Substance: OXALIPLATIN
     Indication: Adenocarcinoma of colon
     Route: 042
     Dates: start: 20230905
  5. FERROUS SULFATE [Concomitant]
     Active Substance: FERROUS SULFATE
  6. ELIQUIS [Concomitant]
     Active Substance: APIXABAN
  7. FLUOROURACIL [Concomitant]
     Active Substance: FLUOROURACIL
     Indication: Adenocarcinoma of colon
     Dosage: ROUTE OF ADMINISTRATION: INTRAVENOUS
     Dates: start: 20230905

REACTIONS (1)
  - Gastrointestinal toxicity [Recovered/Resolved]

NARRATIVE: CASE EVENT DATE: 20230912
